APPROVED DRUG PRODUCT: OLMESARTAN MEDOXOMIL
Active Ingredient: OLMESARTAN MEDOXOMIL
Strength: 20MG
Dosage Form/Route: TABLET;ORAL
Application: A207135 | Product #002 | TE Code: AB
Applicant: UMEDICA LABORATORIES PRIVATE LTD
Approved: Jul 18, 2019 | RLD: No | RS: No | Type: RX